FAERS Safety Report 5974941-8 (Version None)
Quarter: 2008Q4

REPORT INFORMATION
  Report Type: 
  Country: None (occurrence: None)
  Receive Date: 20081202
  Receipt Date: 20081124
  Transmission Date: 20090506
  Serious: Yes (Hospitalization)
  Sender: FDA-Public Use
  Company Number: FR-RANBAXY-2008RR-19517

PATIENT
  Age: 78 Year
  Sex: Female

DRUGS (2)
  1. FUROSEMIDE [Suspect]
     Indication: HYPERTENSIVE CARDIOMYOPATHY
  2. ALDACTONE [Suspect]
     Indication: HYPERTENSIVE CARDIOMYOPATHY

REACTIONS (2)
  - HYPERKALAEMIA [None]
  - PARALYSIS [None]
